FAERS Safety Report 8904735 (Version 1)
Quarter: 2012Q4

REPORT INFORMATION
  Report Type: 
  Country: DK (occurrence: DK)
  Receive Date: 20121113
  Receipt Date: 20121113
  Transmission Date: 20130627
  Serious: Yes (Hospitalization, Disabling)
  Sender: FDA-Public Use
  Company Number: GXKR2010DK01672

PATIENT
  Age: 35 Year
  Sex: Female

DRUGS (2)
  1. LINDYNETTE [Suspect]
     Indication: MENSTRUAL DISORDER
     Dosage: UNK
     Route: 048
     Dates: start: 200708, end: 20080610
  2. HORMONES AND RELATED AGENTS [Concomitant]
     Indication: HAEMORRHAGE

REACTIONS (4)
  - Venous thrombosis [Recovered/Resolved with Sequelae]
  - Pain in extremity [Recovered/Resolved with Sequelae]
  - Oedema peripheral [Recovered/Resolved with Sequelae]
  - Neck pain [Recovered/Resolved with Sequelae]
